FAERS Safety Report 7829169-3 (Version None)
Quarter: 2011Q4

REPORT INFORMATION
  Report Type: 
  Country: None (occurrence: None)
  Receive Date: 20111020
  Receipt Date: 20111017
  Transmission Date: 20120403
  Serious: Yes (Hospitalization, Other)
  Sender: FDA-Public Use
  Company Number: PHHY2011US67753

PATIENT
  Sex: Male
  Weight: 88.86 kg

DRUGS (1)
  1. EXJADE [Suspect]
     Indication: IRON METABOLISM DISORDER
     Dosage: 500 MG, 2 TABLETS DAILY
     Route: 048
     Dates: start: 20110606, end: 20110606

REACTIONS (3)
  - SICKLE CELL ANAEMIA WITH CRISIS [None]
  - WEIGHT DECREASED [None]
  - INFECTION [None]
